FAERS Safety Report 7898137-8 (Version None)
Quarter: 2011Q4

REPORT INFORMATION
  Report Type: 
  Country: None (occurrence: None)
  Receive Date: 20111107
  Receipt Date: 20111026
  Transmission Date: 20120403
  Serious: Yes (Life-Threatening, Other)
  Sender: FDA-Public Use
  Company Number: JP-MERCK-1110USA04478

PATIENT
  Age: 71 Year
  Sex: Male
  Weight: 58 kg

DRUGS (4)
  1. JANUVIA [Suspect]
     Indication: DIABETES MELLITUS
     Route: 048
     Dates: start: 20110722, end: 20110726
  2. RHYTHMY [Concomitant]
     Dosage: DAILY DOSAGE UNKNOWN
     Route: 048
  3. TAFLUPROST [Concomitant]
     Dosage: DAILY DOSAGE UNKNOWN
     Route: 047
  4. LATANOPROST [Concomitant]
     Dosage: DAILY DOSAGE UNKNOWN
     Route: 047

REACTIONS (1)
  - ALTERED STATE OF CONSCIOUSNESS [None]
